FAERS Safety Report 17125475 (Version 2)
Quarter: 2020Q1

REPORT INFORMATION
  Report Type: Spontaneous
  Country: DE (occurrence: DE)
  Receive Date: 20191207
  Receipt Date: 20200107
  Transmission Date: 20200409
  Serious: Yes (Congenital Anomaly, Other)
  Sender: FDA-Public Use
  Company Number: DE-ACCORD-164430

PATIENT
  Sex: Male

DRUGS (2)
  1. ONDANSETRON [Suspect]
     Active Substance: ONDANSETRON
     Indication: MORNING SICKNESS
     Dosage: 2 - 3 TIMES A DAY
     Route: 048
     Dates: start: 20190805, end: 20190823
  2. ONDANSETRON [Suspect]
     Active Substance: ONDANSETRON
     Indication: MORNING SICKNESS
     Dosage: 2 - 3 X TGL.
     Route: 048
     Dates: start: 20190714

REACTIONS (2)
  - Cleft lip [Recovered/Resolved with Sequelae]
  - Foetal exposure during pregnancy [Unknown]
